FAERS Safety Report 7396687-4 (Version None)
Quarter: 2011Q2

REPORT INFORMATION
  Report Type: 
  Country: None (occurrence: None)
  Receive Date: 20110406
  Receipt Date: 20110401
  Transmission Date: 20111010
  Serious: Yes (Hospitalization)
  Sender: FDA-Public Use
  Company Number: DE-ROCHE-740240

PATIENT
  Sex: Female
  Weight: 120 kg

DRUGS (2)
  1. BEVACIZUMAB [Suspect]
     Route: 042
     Dates: start: 20100329
  2. CAPECITABINE [Suspect]
     Route: 048
     Dates: start: 20100320, end: 20100419

REACTIONS (1)
  - SKIN DEGENERATIVE DISORDER [None]
